FAERS Safety Report 9816359 (Version 1)
Quarter: 2014Q1

REPORT INFORMATION
  Report Type: Spontaneous
  Country: US (occurrence: US)
  Receive Date: 20140114
  Receipt Date: 20140114
  Transmission Date: 20141002
  Serious: No
  Sender: FDA-Public Use
  Company Number: US-B.I. PHARMACEUTICALS,INC./RIDGEFIELD-2014-BI-00575BP

PATIENT
  Age: 54 Year
  Sex: Female

DRUGS (4)
  1. JENTADUETO [Suspect]
     Indication: DIABETES MELLITUS
     Dosage: STRENGTH: 2.5 MG / 1000 MG; DAILY DOSE: 5 MG/ 2000 MG
     Route: 048
     Dates: start: 201306, end: 201307
  2. CRESTOR [Concomitant]
     Indication: BLOOD CHOLESTEROL INCREASED
     Route: 048
  3. BENICAR [Concomitant]
     Indication: HYPERTENSION
     Route: 048
  4. LANTUS [Concomitant]
     Route: 058

REACTIONS (2)
  - Abdominal pain upper [Recovered/Resolved]
  - Nausea [Recovered/Resolved]
